FAERS Safety Report 15522615 (Version 1)
Quarter: 2018Q4

REPORT INFORMATION
  Report Type: Report from Study
  Country: US (occurrence: US)
  Receive Date: 20181017
  Receipt Date: 20181017
  Transmission Date: 20190205
  Serious: No
  Sender: FDA-Public Use
  Company Number: US-AMGEN-USASL2018108412

PATIENT
  Age: 77 Year
  Sex: Female

DRUGS (2)
  1. FLU [Concomitant]
     Active Substance: INFLUENZA VIRUS VACCINE
  2. REPATHA [Suspect]
     Active Substance: EVOLOCUMAB
     Indication: BLOOD CHOLESTEROL INCREASED
     Dosage: 140 MG, Q2WK
     Route: 065
     Dates: start: 20180803

REACTIONS (21)
  - Feeling abnormal [Recovering/Resolving]
  - Adverse event [Unknown]
  - Chills [Unknown]
  - Aphonia [Unknown]
  - Disturbance in attention [Unknown]
  - Hot flush [Unknown]
  - Body temperature increased [Unknown]
  - Asthenia [Unknown]
  - Headache [Recovering/Resolving]
  - Musculoskeletal pain [Unknown]
  - Tremor [Unknown]
  - Nausea [Recovering/Resolving]
  - Cold sweat [Recovering/Resolving]
  - Muscular weakness [Unknown]
  - Dizziness [Recovering/Resolving]
  - Blood pressure increased [Unknown]
  - Limb discomfort [Unknown]
  - Fatigue [Unknown]
  - Arthralgia [Unknown]
  - Pain [Unknown]
  - Balance disorder [Recovering/Resolving]

NARRATIVE: CASE EVENT DATE: 2018
